FAERS Safety Report 10901526 (Version 1)
Quarter: 2015Q1

REPORT INFORMATION
  Report Type: Spontaneous
  Country: US (occurrence: None)
  Receive Date: 20150303
  Receipt Date: 20150303
  Transmission Date: 20150721
  Serious: Yes (Disabling)
  Sender: FDA-Public Use
  Company Number: None

PATIENT
  Age: 4 Year
  Sex: Female
  Weight: 14.52 kg

DRUGS (1)
  1. CVS KIDS THROAT RELIEF POPS 10MG PECTIN CVS [Suspect]
     Active Substance: PECTIN
     Indication: OROPHARYNGEAL PAIN
     Dosage: 1 POP  AS NEEDED  TAKEN BY MOUTH
     Route: 048
     Dates: start: 20150226

REACTIONS (3)
  - Oral pain [None]
  - Tongue ulceration [None]
  - Glossodynia [None]

NARRATIVE: CASE EVENT DATE: 20150226
